FAERS Safety Report 5911055-7 (Version None)
Quarter: 2008Q4

REPORT INFORMATION
  Report Type: 
  Country: None (occurrence: None)
  Receive Date: 20081007
  Receipt Date: 20080930
  Transmission Date: 20090506
  Serious: Yes (Life-Threatening, Hospitalization)
  Sender: FDA-Public Use
  Company Number: FR-AVENTIS-200813460FR

PATIENT
  Age: 27 Year
  Sex: Female

DRUGS (7)
  1. CLAFORAN [Suspect]
     Route: 042
     Dates: start: 20080803, end: 20080806
  2. CLAFORAN [Suspect]
     Route: 042
     Dates: start: 20080806, end: 20080810
  3. CLAFORAN [Suspect]
     Indication: MENINGITIS
     Route: 042
     Dates: start: 20080803, end: 20080806
  4. CLAFORAN [Suspect]
     Route: 042
     Dates: start: 20080806, end: 20080810
  5. VANCOMYCIN HCL [Suspect]
     Indication: MENINGITIS
     Route: 042
     Dates: start: 20080806, end: 20080815
  6. RIVOTRIL [Suspect]
     Route: 048
     Dates: start: 20080808, end: 20080816
  7. FOSFOCINE [Suspect]
     Route: 042
     Dates: end: 20080815

REACTIONS (2)
  - CYTOLYTIC HEPATITIS [None]
  - DRUG EXPOSURE DURING PREGNANCY [None]
